FAERS Safety Report 4616177-9 (Version None)
Quarter: 2005Q1

REPORT INFORMATION
  Report Type: 
  Country: None (occurrence: None)
  Receive Date: 20050321
  Receipt Date: 20030716
  Transmission Date: 20050727
  Serious: Yes (Death)
  Sender: FDA-Public Use
  Company Number: 5947

PATIENT
  Age: 89 Year
  Sex: 0

DRUGS (1)
  1. AMIODARONE [Suspect]

REACTIONS (4)
  - FIBROSIS [None]
  - SUDDEN DEATH [None]
  - THYROID ATROPHY [None]
  - THYROID DISORDER [None]
